FAERS Safety Report 5668054-2 (Version None)
Quarter: 2008Q1

REPORT INFORMATION
  Report Type: 
  Country: None (occurrence: None)
  Receive Date: 20080315
  Receipt Date: 20080221
  Transmission Date: 20080703
  Serious: No
  Sender: FDA-Public Use
  Company Number: US-ABBOTT-08P-163-0438260-00

PATIENT
  Sex: Female
  Weight: 70.37 kg

DRUGS (5)
  1. HUMIRA [Suspect]
     Indication: CROHN'S DISEASE
     Route: 058
     Dates: start: 20070917
  2. LOVAZA [Concomitant]
     Indication: BLOOD CHOLESTEROL INCREASED
     Route: 048
     Dates: start: 20070701
  3. FOLIC ACID [Concomitant]
     Indication: DRUG USE FOR UNKNOWN INDICATION
     Route: 048
  4. LIFINOPRIZ [Concomitant]
     Indication: BLOOD PRESSURE
     Route: 048
  5. ESTROGENIC SUBSTANCE [Concomitant]
     Indication: MENOPAUSE

REACTIONS (3)
  - CROHN'S DISEASE [None]
  - RASH [None]
  - URTICARIA [None]
